FAERS Safety Report 7816517 (Version 2)
Quarter: 2014Q1

REPORT INFORMATION
  Report Type: Spontaneous
  Country: FR (occurrence: FR)
  Receive Date: 20110217
  Receipt Date: 20140306
  Transmission Date: 20141002
  Serious: Yes (Hospitalization, Other)
  Sender: FDA-Public Use
  Company Number: FR-JNJFOC-20110203366

PATIENT
  Age: 33 Year
  Sex: Female

DRUGS (9)
  1. REMICADE [Suspect]
     Indication: COLITIS ULCERATIVE
     Dosage: 1ST DOSE
     Route: 042
     Dates: start: 20090813
  2. REMICADE [Suspect]
     Indication: COLITIS ULCERATIVE
     Dosage: 1ST DOSE
     Route: 042
     Dates: start: 20090827, end: 20090827
  3. REMICADE [Suspect]
     Indication: COLITIS
     Dosage: 1ST DOSE
     Route: 042
     Dates: start: 20090813
  4. REMICADE [Suspect]
     Indication: COLITIS
     Dosage: 1ST DOSE
     Route: 042
     Dates: start: 20090827, end: 20090827
  5. SOLUPRED [Suspect]
     Indication: COLITIS
     Route: 048
     Dates: start: 20090625
  6. FIVASA [Suspect]
     Indication: COLITIS
     Route: 048
  7. COLOFOAM [Suspect]
     Indication: COLITIS
     Route: 054
     Dates: start: 20090625
  8. INEXIUM [Suspect]
     Indication: PROPHYLAXIS
     Route: 048
     Dates: start: 20090625
  9. OROCAL [Suspect]
     Indication: PROPHYLAXIS
     Dates: start: 20090625

REACTIONS (4)
  - Foetal death [Recovered/Resolved]
  - Threatened labour [Recovered/Resolved with Sequelae]
  - Exposure during pregnancy [Recovered/Resolved]
  - Listeriosis [Unknown]
